FAERS Safety Report 15858694 (Version 1)
Quarter: 2018Q4

REPORT INFORMATION
  Report Type: Spontaneous
  Country: US (occurrence: US)
  Receive Date: 20181231
  Receipt Date: 20181231
  Transmission Date: 20190205
  Serious: Yes (Life-Threatening, Hospitalization)
  Sender: FDA-Public Use
  Company Number: None

PATIENT
  Age: 79 Year
  Sex: Female
  Weight: 55.35 kg

DRUGS (2)
  1. PLAVIX [Suspect]
     Active Substance: CLOPIDOGREL BISULFATE
  2. ELIQUIS [Suspect]
     Active Substance: APIXABAN

REACTIONS (4)
  - Cold sweat [None]
  - Nosocomial infection [None]
  - Fall [None]
  - Pulmonary haemorrhage [None]

NARRATIVE: CASE EVENT DATE: 20181212
